FAERS Safety Report 9404952 (Version 1)
Quarter: 2013Q3

REPORT INFORMATION
  Report Type: Spontaneous
  Country: US (occurrence: US)
  Receive Date: 20130717
  Receipt Date: 20130717
  Transmission Date: 20140515
  Serious: Yes (Death)
  Sender: FDA-Public Use
  Company Number: US-BRISTOL-MYERS SQUIBB COMPANY-18719625

PATIENT
  Age: 49 Year
  Sex: Male
  Weight: 79.14 kg

DRUGS (1)
  1. YERVOY [Suspect]
     Indication: MALIGNANT MELANOMA
     Dosage: ALSO ON 28FEB13?LOT: 200MG-920172,50MG-920578 EXP:200MG-DEC2014,50MG-NOV2014
     Dates: start: 20130207, end: 20130228

REACTIONS (1)
  - Malignant neoplasm progression [Fatal]
